FAERS Safety Report 6761119-3 (Version None)
Quarter: 2010Q2

REPORT INFORMATION
  Report Type: 
  Country: None (occurrence: None)
  Receive Date: 20100608
  Receipt Date: 20100601
  Transmission Date: 20101027
  Serious: Yes (Death, Other)
  Sender: FDA-Public Use
  Company Number: GB-ROXANE LABORATORIES, INC.-2010-RO-00656RO

PATIENT
  Sex: Female

DRUGS (3)
  1. LIDOCAINE [Suspect]
     Indication: ANAESTHESIA
     Dosage: 4 ML
  2. LEVOBUPIVOCAINE [Suspect]
     Indication: ANAESTHESIA
     Dosage: 1 ML
  3. HYALASE [Suspect]
     Indication: ANAESTHESIA

REACTIONS (2)
  - DISEASE COMPLICATION [None]
  - INTRAOCULAR PRESSURE INCREASED [None]
